FAERS Safety Report 24678424 (Version 3)
Quarter: 2025Q3

REPORT INFORMATION
  Report Type: Report from Study
  Country: JP (occurrence: JP)
  Receive Date: 20241129
  Receipt Date: 20250810
  Transmission Date: 20251020
  Serious: Yes (Death, Life-Threatening, Other)
  Sender: ALEXION PHARMACEUTICALS
  Company Number: JP-ASTRAZENECA-240132901_013120_P_1

PATIENT
  Age: 65 Year
  Sex: Male
  Weight: 50 kg

DRUGS (2)
  1. DURVALUMAB [Suspect]
     Active Substance: DURVALUMAB
     Indication: Hepatocellular carcinoma
     Dosage: 3 MILLIGRAM/KILOGRAM, Q4W
     Dates: start: 20230627, end: 20230627
  2. TREMELIMUMAB [Suspect]
     Active Substance: TREMELIMUMAB
     Indication: Hepatocellular carcinoma
     Dosage: 3 MILLIGRAM/KILOGRAM, Q4W
     Dates: start: 20230627, end: 20230627

REACTIONS (2)
  - Interstitial lung disease [Not Recovered/Not Resolved]
  - Respiratory failure [Fatal]

NARRATIVE: CASE EVENT DATE: 20230630
